FAERS Safety Report 4659512-8 (Version None)
Quarter: 2005Q2

REPORT INFORMATION
  Report Type: 
  Country: None (occurrence: None)
  Receive Date: 20050412
  Receipt Date: 20050224
  Transmission Date: 20051028
  Serious: No
  Sender: FDA-Public Use
  Company Number: 2005S1000033

PATIENT
  Age: 38 Year
  Sex: Male
  Weight: 182 kg

DRUGS (10)
  1. CUBICIN [Suspect]
     Indication: OSTEOMYELITIS
     Dosage: 250 MG; Q24H; IV
     Route: 042
     Dates: start: 20041218, end: 20050131
  2. CUBICIN [Suspect]
     Indication: STAPHYLOCOCCAL INFECTION
     Dosage: 250 MG; Q24H; IV
     Route: 042
     Dates: start: 20041218, end: 20050131
  3. ATORVASTATIN [Concomitant]
  4. WARFARIN SODIUM [Concomitant]
  5. GLUCOVANCE [Concomitant]
  6. ROSIGLITAZONE [Concomitant]
  7. LISINOPRIL [Concomitant]
  8. VENLAFAXINE HCL [Concomitant]
  9. TERBINAFINE [Concomitant]
  10. REPAGLINIDE [Concomitant]

REACTIONS (1)
  - BLOOD CREATINE PHOSPHOKINASE INCREASED [None]
